FAERS Safety Report 6322205-5 (Version None)
Quarter: 2009Q3

REPORT INFORMATION
  Report Type: 
  Country: None (occurrence: None)
  Receive Date: 20090824
  Receipt Date: 20090127
  Transmission Date: 20100115
  Serious: No
  Sender: FDA-Public Use
  Company Number: US-ABBOTT-09P-163-0500564-00

PATIENT
  Sex: Female
  Weight: 61.29 kg

DRUGS (2)
  1. NIASPAN [Suspect]
     Indication: BLOOD CHOLESTEROL
     Dosage: UNSURE OF STRENGTH
     Route: 048
     Dates: start: 20081201, end: 20090101
  2. ANTI-DIABETIC MEDICATION [Concomitant]
     Indication: DIABETES MELLITUS

REACTIONS (3)
  - ERYTHEMA [None]
  - PRURITUS [None]
  - SWELLING FACE [None]
